FAERS Safety Report 8150761 (Version 2)
Quarter: 2013Q4

REPORT INFORMATION
  Report Type: Report from Study
  Country: US (occurrence: US)
  Receive Date: 20110922
  Receipt Date: 20131231
  Transmission Date: 20140711
  Serious: Yes (Other)
  Sender: FDA-Public Use
  Company Number: US-ASTRAZENECA-2011SE00759

PATIENT
  Age: 57 Year
  Sex: Male
  Weight: 80.3 kg

DRUGS (4)
  1. SEROQUEL XR [Suspect]
     Indication: BIPOLAR DISORDER
     Route: 048
     Dates: start: 2002, end: 20131222
  2. SEROQUEL XR [Suspect]
     Indication: BIPOLAR DISORDER
     Route: 048
     Dates: start: 2011, end: 2011
  3. SEROQUEL XR [Suspect]
     Indication: BIPOLAR DISORDER
     Route: 048
  4. SEROQUEL XR [Suspect]
     Indication: BIPOLAR DISORDER
     Route: 048

REACTIONS (7)
  - Feeling abnormal [Unknown]
  - Depressed mood [Unknown]
  - Violence-related symptom [Unknown]
  - Anger [Unknown]
  - Road traffic accident [Unknown]
  - Drug dispensing error [Unknown]
  - Drug dose omission [Unknown]
